FAERS Safety Report 7438595-6 (Version None)
Quarter: 2011Q2

REPORT INFORMATION
  Report Type: 
  Country: None (occurrence: None)
  Receive Date: 20110426
  Receipt Date: 20110421
  Transmission Date: 20111010
  Serious: Yes (Other)
  Sender: FDA-Public Use
  Company Number: US-PFIZER INC-2011087614

PATIENT
  Sex: Female

DRUGS (2)
  1. LYRICA [Suspect]
     Indication: ARTHRITIS
     Dosage: UNK
  2. LYRICA [Suspect]
     Indication: DIABETIC NEUROPATHY

REACTIONS (5)
  - BEDRIDDEN [None]
  - GAIT DISTURBANCE [None]
  - DEHYDRATION [None]
  - OEDEMA [None]
  - COGNITIVE DISORDER [None]
